FAERS Safety Report 5347655-5 (Version None)
Quarter: 2007Q2

REPORT INFORMATION
  Report Type: 
  Country: None (occurrence: None)
  Receive Date: 20070604
  Receipt Date: 20070604
  Transmission Date: 20071010
  Serious: No
  Sender: FDA-Public Use
  Company Number: None

PATIENT
  Age: 50 Year
  Sex: Male
  Weight: 106.5953 kg

DRUGS (1)
  1. MORPHINE SULFATE [Suspect]
     Indication: CHEST PAIN
     Dosage: 2MG PRN IVP
     Route: 042
     Dates: start: 20070507

REACTIONS (2)
  - CHEST PAIN [None]
  - FEELING ABNORMAL [None]
